FAERS Safety Report 5170711-1 (Version None)
Quarter: 2006Q4

REPORT INFORMATION
  Report Type: 
  Country: None (occurrence: None)
  Receive Date: 20060919
  Receipt Date: 20060711
  Transmission Date: 20070319
  Serious: No
  Sender: FDA-Public Use
  Company Number: 2006US001563

PATIENT
  Age: 75 Year
  Sex: Female

DRUGS (7)
  1. VESICARE [Suspect]
     Indication: INCONTINENCE
     Dosage: 5 MG ; 10MG  :  UID/QD, ORAL
     Route: 048
     Dates: start: 20050101
  2. DIURETICS [Concomitant]
  3. ALTACE [Concomitant]
  4. EVISTA [Concomitant]
  5. VITAMINS [Concomitant]
  6. NEXIUM [Concomitant]
  7. PREVACID [Concomitant]

REACTIONS (1)
  - URINARY INCONTINENCE [None]
